FAERS Safety Report 5546747-5 (Version None)
Quarter: 2007Q4

REPORT INFORMATION
  Report Type: 
  Country: None (occurrence: None)
  Receive Date: 20071211
  Receipt Date: 20071129
  Transmission Date: 20080405
  Serious: Yes (Hospitalization)
  Sender: FDA-Public Use
  Company Number: GB-GILEAD-2007-0014499

PATIENT
  Age: 25 Year
  Sex: Male

DRUGS (5)
  1. VIREAD [Suspect]
     Indication: HIV INFECTION
  2. LAMIVUDINE [Concomitant]
     Indication: HIV INFECTION
  3. NEVIRAPINE [Concomitant]
     Indication: HIV INFECTION
  4. COTRIM [Concomitant]
     Indication: ANTIFUNGAL PROPHYLAXIS
  5. LOPERAMIDE HYDROCHLORIDE [Concomitant]
     Indication: DIARRHOEA

REACTIONS (1)
  - VANISHING BILE DUCT SYNDROME [None]
